FAERS Safety Report 17053505 (Version 2)
Quarter: 2019Q4

REPORT INFORMATION
  Report Type: Spontaneous
  Country: US (occurrence: US)
  Receive Date: 20191120
  Receipt Date: 20191202
  Transmission Date: 20200122
  Serious: No
  Sender: FDA-Public Use
  Company Number: US-PFIZER INC-2019500777

PATIENT
  Age: 70 Year
  Sex: Female

DRUGS (1)
  1. TOVIAZ [Suspect]
     Active Substance: FESOTERODINE FUMARATE
     Dosage: 4 MG, UNK
     Dates: end: 20191110

REACTIONS (3)
  - Fear [Recovering/Resolving]
  - Malaise [Unknown]
  - Nervousness [Recovering/Resolving]

NARRATIVE: CASE EVENT DATE: 20191108
